FAERS Safety Report 5718094-X (Version None)
Quarter: 2008Q2

REPORT INFORMATION
  Report Type: 
  Country: None (occurrence: None)
  Receive Date: 20080425
  Receipt Date: 20080422
  Transmission Date: 20081010
  Serious: Yes (Death, Hospitalization)
  Sender: FDA-Public Use
  Company Number: GB-MERCK-0704GBR00037

PATIENT
  Age: 6 Year
  Sex: Female

DRUGS (11)
  1. DEXAMETHASONE [Suspect]
     Route: 048
  2. PRIMAXIN [Suspect]
     Route: 042
  3. VINCRISTINE [Suspect]
     Route: 065
  4. DACTINOMYCIN [Suspect]
     Route: 065
  5. CARBOPLATIN [Suspect]
     Route: 065
  6. EPIRUBICIN HYDROCHLORIDE [Suspect]
     Route: 065
  7. ETOPOSIDE [Suspect]
     Route: 065
  8. IFOSFAMIDE [Suspect]
     Route: 065
  9. AMPHOTERICIN B [Concomitant]
     Route: 065
  10. FLUCYTOSINE [Concomitant]
     Route: 065
  11. CORTICOSTEROIDS (UNSPECIFIED) [Concomitant]
     Route: 065

REACTIONS (13)
  - BETA HAEMOLYTIC STREPTOCOCCAL INFECTION [None]
  - BLOOD CULTURE POSITIVE [None]
  - CANDIDA SEROLOGY POSITIVE [None]
  - CANDIDIASIS [None]
  - FEBRILE NEUTROPENIA [None]
  - MUCOSAL INFLAMMATION [None]
  - NEUTROPENIA [None]
  - PNEUMONITIS [None]
  - PNEUMOTHORAX [None]
  - PULMONARY TOXICITY [None]
  - RADIATION INTERACTION [None]
  - RESPIRATORY FAILURE [None]
  - SPUTUM CULTURE POSITIVE [None]
